FAERS Safety Report 9364810 (Version 1)
Quarter: 2013Q2

REPORT INFORMATION
  Report Type: Spontaneous
  Country: US (occurrence: US)
  Receive Date: 20130624
  Receipt Date: 20130624
  Transmission Date: 20140414
  Serious: Yes (Hospitalization)
  Sender: FDA-Public Use
  Company Number: US-ELI_LILLY_AND_COMPANY-US201306003907

PATIENT
  Age: 71 Year
  Sex: Female

DRUGS (7)
  1. FORTEO [Suspect]
     Indication: OSTEOPOROSIS
     Dosage: UNK, QD
     Dates: start: 20130325, end: 20130404
  2. FORTEO [Suspect]
     Dosage: UNK, QD
     Dates: start: 20130514
  3. HUMULIN 30% REGULAR, 70% NPH [Suspect]
     Indication: TYPE 2 DIABETES MELLITUS
     Dosage: 42 U, EACH MORNING
  4. HUMULIN 30% REGULAR, 70% NPH [Suspect]
     Dosage: 20 U, EACH EVENING
  5. LISINOPRIL                              /USA/ [Concomitant]
  6. CARDIZEM                           /00489701/ [Concomitant]
  7. HYDRALAZINE [Concomitant]

REACTIONS (4)
  - Blood pressure systolic increased [Recovered/Resolved]
  - Hypoglycaemia [Unknown]
  - Delirium [Unknown]
  - Disorientation [Unknown]
